FAERS Safety Report 7538397-6 (Version None)
Quarter: 2011Q2

REPORT INFORMATION
  Report Type: 
  Country: None (occurrence: None)
  Receive Date: 20110609
  Receipt Date: 20110525
  Transmission Date: 20111010
  Serious: Yes (Other)
  Sender: FDA-Public Use
  Company Number: GB-WATSON-2011-07766

PATIENT
  Age: 64 Year
  Sex: Male
  Weight: 101 kg

DRUGS (16)
  1. CLOBETASOL PROPIONATE [Concomitant]
     Indication: PSORIASIS
     Dosage: UNK
     Route: 065
  2. ACETAMINOPHEN [Concomitant]
     Indication: PAIN
     Dosage: 500 MG
     Route: 065
  3. CLOPIDOGREL [Concomitant]
     Indication: CARDIAC DISORDER
     Dosage: 75 MG ONE TIME A DAY
     Route: 065
  4. YARROW MIX [Concomitant]
     Indication: PHYTOTHERAPY
     Dosage: UNK
     Route: 065
  5. HYDROMOL CREAM [Concomitant]
     Indication: PSORIASIS
     Dosage: UNK
     Route: 065
  6. ROSUVASTATIN [Concomitant]
     Indication: PRODUCT USED FOR UNKNOWN INDICATION
     Dosage: 10 MG
     Route: 065
  7. MEPERIDINE HCL [Concomitant]
     Indication: PAIN
     Dosage: 100 MG
     Route: 065
  8. TRAMADOL HCL [Concomitant]
     Indication: PAIN
     Dosage: 100 MG
     Route: 065
  9. RAMIPRIL [Suspect]
     Indication: CARDIAC DISORDER
     Dosage: 2.5 MG QAM
     Route: 065
  10. ASPIRIN [Concomitant]
     Indication: MYOCARDIAL ISCHAEMIA
     Dosage: 75 MG ONE TIME A DAY
     Route: 048
     Dates: start: 20081101
  11. PEPPERMINT OIL [Concomitant]
     Indication: PRODUCT USED FOR UNKNOWN INDICATION
     Dosage: UNK
     Route: 065
  12. BISOPROLOL (UNKNOWN) [Suspect]
     Indication: MYOCARDIAL ISCHAEMIA
     Dosage: 2.5 MG QAM
     Route: 048
     Dates: start: 20081101, end: 20100801
  13. BISOPROLOL (UNKNOWN) [Suspect]
     Indication: ACUTE MYOCARDIAL INFARCTION
  14. COVERSYL                           /00790702/ [Concomitant]
     Indication: MYOCARDIAL ISCHAEMIA
     Dosage: 5 MG
     Route: 048
     Dates: start: 20090601
  15. IBUROFEN [Concomitant]
     Indication: PAIN
     Dosage: 600 MG
     Route: 065
  16. NEBIVOLOL HCL [Concomitant]
     Indication: PRODUCT USED FOR UNKNOWN INDICATION
     Dosage: 2.5 MG
     Route: 065

REACTIONS (2)
  - PSORIASIS [None]
  - OSTEOARTHRITIS [None]
